FAERS Safety Report 15859037 (Version 1)
Quarter: 2019Q1

REPORT INFORMATION
  Report Type: Spontaneous
  Country: CA (occurrence: CA)
  Receive Date: 20190123
  Receipt Date: 20190123
  Transmission Date: 20190417
  Serious: Yes (Other)
  Sender: FDA-Public Use
  Company Number: CA-PFIZER INC-2018454473

PATIENT
  Age: 30 Year
  Sex: Female

DRUGS (12)
  1. GOLD [Suspect]
     Active Substance: GOLD
     Dosage: 50 MG, WEEKLY
  2. METHOTREXATE SODIUM. [Suspect]
     Active Substance: METHOTREXATE SODIUM
     Dosage: 15 MG, 1X/DAY
  3. SULFASALAZINE. [Suspect]
     Active Substance: SULFASALAZINE
     Dosage: UNK
  4. HUMIRA [Suspect]
     Active Substance: ADALIMUMAB
     Indication: RHEUMATOID ARTHRITIS
     Dosage: UNK
     Route: 058
  5. METHOTREXATE SODIUM. [Suspect]
     Active Substance: METHOTREXATE SODIUM
     Dosage: 15 MG, 1X/DAY
  6. CELEBREX [Suspect]
     Active Substance: CELECOXIB
     Dosage: 200 MG, ALTERNATE DAY (1 EVERY 2 DAYS )
  7. CICLOSPORIN [Suspect]
     Active Substance: CYCLOSPORINE
     Dosage: UNK
  8. IMURAN [Suspect]
     Active Substance: AZATHIOPRINE
     Dosage: UNK
  9. PREDNISONE. [Suspect]
     Active Substance: PREDNISONE
     Dosage: 5 MG, 1X/DAY (1 EVERY 24 HOURS)
  10. REMICADE [Suspect]
     Active Substance: INFLIXIMAB
     Dosage: UNK
     Route: 042
  11. SULFASALAZINE. [Suspect]
     Active Substance: SULFASALAZINE
     Dosage: UNK, ALTERNATE DAY (1 EVERY 2 DAYS )
  12. ORENCIA [Suspect]
     Active Substance: ABATACEPT
     Dosage: 125 MG, WEEKLY

REACTIONS (8)
  - Drug ineffective [Unknown]
  - Leukopenia [Unknown]
  - Drug effect incomplete [Unknown]
  - Drug intolerance [Unknown]
  - Dyspnoea [Unknown]
  - Mouth ulceration [Unknown]
  - Drug hypersensitivity [Unknown]
  - Treatment failure [Unknown]
